FAERS Safety Report 7273018-1 (Version None)
Quarter: 2011Q1

REPORT INFORMATION
  Report Type: 
  Country: None (occurrence: None)
  Receive Date: 20110203
  Receipt Date: 20110124
  Transmission Date: 20110831
  Serious: Yes (Other)
  Sender: FDA-Public Use
  Company Number: B0696516A

PATIENT

DRUGS (3)
  1. DORAL [Concomitant]
     Route: 048
  2. PAXIL [Suspect]
     Indication: PRODUCT USED FOR UNKNOWN INDICATION
     Dosage: 540MG PER DAY
     Route: 048
  3. LENDORMIN [Concomitant]
     Route: 048

REACTIONS (1)
  - OVERDOSE [None]
